FAERS Safety Report 7069779-7 (Version None)
Quarter: 2010Q4

REPORT INFORMATION
  Report Type: 
  Country: None (occurrence: None)
  Receive Date: 20101028
  Receipt Date: 20100601
  Transmission Date: 20110411
  Serious: No
  Sender: FDA-Public Use
  Company Number: US-WYE-H15632410

PATIENT
  Weight: 88.53 kg

DRUGS (15)
  1. PROTONIX [Suspect]
     Dosage: TWICE DAILY
     Dates: start: 20100501, end: 20100101
  2. PROTONIX [Suspect]
     Dosage: ONCE DAILY
     Dates: start: 20100101
  3. SOTALOL [Concomitant]
  4. SYNTHROID [Concomitant]
  5. TORASEMIDE [Concomitant]
  6. KLOR-CON [Concomitant]
  7. DILAUDID [Suspect]
     Indication: PROCEDURAL PAIN
     Dosage: UNKNOWN
     Route: 042
     Dates: start: 20100501, end: 20100501
  8. DILAUDID [Suspect]
     Dosage: 2 MG TO 4 MG
     Route: 048
     Dates: start: 20100501, end: 20100526
  9. METFORMIN [Concomitant]
  10. CARAFATE [Concomitant]
  11. JANUVIA [Concomitant]
  12. COUMADIN [Concomitant]
  13. VYTORIN [Concomitant]
  14. CEPHALEXIN [Concomitant]
  15. ALDACTONE [Concomitant]

REACTIONS (1)
  - VISUAL IMPAIRMENT [None]
